FAERS Safety Report 6591769-9 (Version None)
Quarter: 2010Q1

REPORT INFORMATION
  Report Type: 
  Country: None (occurrence: None)
  Receive Date: 20100221
  Receipt Date: 20090820
  Transmission Date: 20100710
  Serious: No
  Sender: FDA-Public Use
  Company Number: US-ALLERGAN-0908401US

PATIENT
  Sex: Female
  Weight: 68.027 kg

DRUGS (2)
  1. BOTOX COSMETIC [Suspect]
     Indication: SKIN WRINKLING
     Dosage: 47 UNITS, SINGLE
     Dates: start: 20090602, end: 20090602
  2. BOTOX COSMETIC [Suspect]
     Dosage: UNK
     Dates: start: 20090616, end: 20090616

REACTIONS (1)
  - EYELID PTOSIS [None]
